FAERS Safety Report 11388104 (Version 1)
Quarter: 2015Q3

REPORT INFORMATION
  Report Type: Report from Study
  Country: US (occurrence: US)
  Receive Date: 20150817
  Receipt Date: 20150817
  Transmission Date: 20151125
  Serious: Yes (Hospitalization, Other)
  Sender: FDA-Public Use
  Company Number: US-GLAXOSMITHKLINE-US2015GSK116630

PATIENT
  Age: 19 Year
  Sex: Male
  Weight: 81.6 kg

DRUGS (7)
  1. IFOSFAMIDE. [Suspect]
     Active Substance: IFOSFAMIDE
     Indication: SYNOVIAL SARCOMA
     Dosage: 2500 MG/M2, CYC
     Route: 042
     Dates: start: 20150131, end: 20150621
  2. BACTRIM DS [Concomitant]
     Active Substance: SULFAMETHOXAZOLE\TRIMETHOPRIM
     Dosage: UNK, BID
  3. NEURONTIN [Concomitant]
     Active Substance: GABAPENTIN
     Dosage: 300 MG, BID
  4. PAZOPANIB [Suspect]
     Active Substance: PAZOPANIB
     Indication: SYNOVIAL SARCOMA
     Dosage: 600 MG, QD
     Route: 048
     Dates: start: 20150131, end: 20150618
  5. IFOSFAMIDE. [Suspect]
     Active Substance: IFOSFAMIDE
     Dosage: UNK
  6. RADIATION THERAPY [Concomitant]
     Active Substance: RADIATION THERAPY
     Indication: SYNOVIAL SARCOMA
  7. DOXORUBICIN [Suspect]
     Active Substance: DOXORUBICIN
     Indication: SYNOVIAL SARCOMA
     Dosage: 37.5 MG/M2, CYC
     Route: 042
     Dates: start: 20150131, end: 20150709

REACTIONS (1)
  - Wound dehiscence [Recovering/Resolving]

NARRATIVE: CASE EVENT DATE: 20150725
